FAERS Safety Report 13276776 (Version 2)
Quarter: 2017Q1

REPORT INFORMATION
  Report Type: Spontaneous
  Country: AU (occurrence: AU)
  Receive Date: 20170228
  Receipt Date: 20170314
  Transmission Date: 20170428
  Serious: Yes (Death, Other)
  Sender: FDA-Public Use
  Company Number: AU-009507513-1702AUS011706

PATIENT
  Age: 68 Year
  Sex: Male

DRUGS (6)
  1. PREDNISONE. [Suspect]
     Active Substance: PREDNISONE
     Indication: INFLAMMATION
     Dosage: 20 MG, QD
     Route: 048
  2. DIPHENCYPRONE [Concomitant]
     Active Substance: DIPHENCYPRONE
     Dosage: UNK
     Route: 061
  3. BETAMETHASONE. [Suspect]
     Active Substance: BETAMETHASONE
     Indication: ERYTHEMA
     Dosage: UNK
     Route: 061
  4. PEMBROLIZUMAB. [Suspect]
     Active Substance: PEMBROLIZUMAB
     Indication: MALIGNANT MELANOMA
     Dosage: UNK
  5. PREDNISONE. [Suspect]
     Active Substance: PREDNISONE
     Dosage: UNK, WEANING DOSE
  6. BETAMETHASONE VALERATE. [Suspect]
     Active Substance: BETAMETHASONE VALERATE
     Indication: ERYTHEMA
     Dosage: UNK
     Route: 061

REACTIONS (2)
  - Malignant neoplasm progression [Fatal]
  - Drug ineffective [Unknown]
